FAERS Safety Report 20118517 (Version 1)
Quarter: 2021Q4

REPORT INFORMATION
  Report Type: Spontaneous
  Country: US (occurrence: None)
  Receive Date: 20211124
  Receipt Date: 20211124
  Transmission Date: 20220303
  Serious: Yes (Hospitalization)
  Sender: FDA-Public Use
  Company Number: None

PATIENT

DRUGS (2)
  1. INSULIN NOS [Suspect]
     Active Substance: INSULIN NOS
  2. INSULIN NOS [Suspect]
     Active Substance: INSULIN NOS

REACTIONS (6)
  - Hypoglycaemia [None]
  - Product name confusion [None]
  - Product name confusion [None]
  - Device computer issue [None]
  - Wrong dose [None]
  - Wrong technique in device usage process [None]
